FAERS Safety Report 5656050-0 (Version None)
Quarter: 2008Q1

REPORT INFORMATION
  Report Type: 
  Country: None (occurrence: None)
  Receive Date: 20080307
  Receipt Date: 20080227
  Transmission Date: 20080703
  Serious: Yes (Other)
  Sender: FDA-Public Use
  Company Number: BR-PFIZER INC-2008019341

PATIENT
  Sex: Male

DRUGS (2)
  1. LIPITOR [Suspect]
     Indication: SURGERY
     Route: 048
  2. AMLODIPINE [Concomitant]

REACTIONS (4)
  - HYPERHIDROSIS [None]
  - LABYRINTHITIS [None]
  - MALAISE [None]
  - PERIPHERAL COLDNESS [None]
